FAERS Safety Report 7119651-9 (Version None)
Quarter: 2010Q4

REPORT INFORMATION
  Report Type: 
  Country: None (occurrence: None)
  Receive Date: 20101115
  Receipt Date: 20101108
  Transmission Date: 20110411
  Serious: Yes (Hospitalization)
  Sender: FDA-Public Use
  Company Number: 2010MA004439

PATIENT
  Age: 67 Year
  Sex: Female

DRUGS (10)
  1. DIAZEPAM [Suspect]
     Indication: ANGIOGRAM
     Dates: start: 20100520, end: 20100520
  2. KETOGAN (KETOGIN) [Suspect]
     Indication: ANGIOGRAM
     Dates: start: 20100520, end: 20100520
  3. METFORMIN [Concomitant]
  4. METOPROLOL [Concomitant]
  5. ENALAPRIL [Concomitant]
  6. SIMVASTATIN [Concomitant]
  7. DIGOXIN [Concomitant]
  8. TROMBYL [Concomitant]
  9. LEVOTHYROXINE SODIUM [Concomitant]
  10. PREV MEDS [Concomitant]

REACTIONS (3)
  - COLD SWEAT [None]
  - MALAISE [None]
  - VOMITING [None]
